FAERS Safety Report 5623608-4 (Version None)
Quarter: 2008Q1

REPORT INFORMATION
  Report Type: 
  Country: None (occurrence: None)
  Receive Date: 20080212
  Receipt Date: 20080116
  Transmission Date: 20080703
  Serious: No
  Sender: FDA-Public Use
  Company Number: US-BOEHRINGER INGELHEIM GMBH, GERMANY-2008-BP-00791BP

PATIENT
  Age: 41 Year
  Sex: Male

DRUGS (2)
  1. MIRAPEX [Suspect]
     Indication: RESTLESS LEGS SYNDROME
     Dosage: EVERY NIGHT
     Route: 048
     Dates: start: 20071101
  2. TRAZODONE HCL [Concomitant]
     Dates: end: 20060101

REACTIONS (2)
  - RASH [None]
  - URTICARIA [None]
